FAERS Safety Report 13896906 (Version 1)
Quarter: 2017Q3

REPORT INFORMATION
  Report Type: Spontaneous
  Country: US (occurrence: US)
  Receive Date: 20170822
  Receipt Date: 20170822
  Transmission Date: 20171127
  Serious: No
  Sender: FDA-Public Use
  Company Number: None

PATIENT
  Age: 67 Year
  Sex: Male
  Weight: 83.25 kg

DRUGS (4)
  1. ULTRAM [Suspect]
     Active Substance: TRAMADOL HYDROCHLORIDE
     Indication: PAIN
     Dosage: QUANTITY:100 TABLET(S);?
     Route: 048
     Dates: start: 19990202, end: 20170817
  2. TRAMADOL. [Suspect]
     Active Substance: TRAMADOL
     Indication: PAIN
     Route: 048
     Dates: start: 20040605, end: 20170817
  3. TRAMADOL. [Suspect]
     Active Substance: TRAMADOL
     Indication: BACK INJURY
     Route: 048
     Dates: start: 20040605, end: 20170817
  4. ULTRAM [Suspect]
     Active Substance: TRAMADOL HYDROCHLORIDE
     Indication: BACK INJURY
     Dosage: QUANTITY:100 TABLET(S);?
     Route: 048
     Dates: start: 19990202, end: 20170817

REACTIONS (9)
  - Ear pain [None]
  - Drug effect decreased [None]
  - Back pain [None]
  - Arthralgia [None]
  - Heart rate increased [None]
  - Pain [None]
  - Nausea [None]
  - Dizziness [None]
  - Pain in extremity [None]

NARRATIVE: CASE EVENT DATE: 20000102
